FAERS Safety Report 25735821 (Version 1)
Quarter: 2025Q3

REPORT INFORMATION
  Report Type: Spontaneous
  Country: US (occurrence: US)
  Receive Date: 20250828
  Receipt Date: 20250828
  Transmission Date: 20251020
  Serious: No
  Sender: PFIZER
  Company Number: US-PFIZER INC-202500170243

PATIENT
  Age: 74 Year
  Sex: Female
  Weight: 77.11 kg

DRUGS (2)
  1. IBRANCE [Suspect]
     Active Substance: PALBOCICLIB
  2. PENICILLIN [Concomitant]
     Active Substance: PENICILLIN
     Indication: Tooth disorder

REACTIONS (2)
  - Mouth ulceration [Unknown]
  - Oral disorder [Unknown]
